FAERS Safety Report 15932071 (Version 1)
Quarter: 2019Q1

REPORT INFORMATION
  Report Type: Spontaneous
  Country: US (occurrence: US)
  Receive Date: 20190207
  Receipt Date: 20190207
  Transmission Date: 20190417
  Serious: Yes (Hospitalization, Disabling, Other)
  Sender: FDA-Public Use
  Company Number: None

PATIENT
  Age: 37 Year
  Sex: Female

DRUGS (2)
  1. RISPERDAL [Suspect]
     Active Substance: RISPERIDONE
     Indication: PRODUCT USED FOR UNKNOWN INDICATION
     Dosage: ?          OTHER ROUTE:NOT SURE?
     Dates: start: 20181012, end: 20181113
  2. LORAZEPAM INJECTION [Suspect]
     Active Substance: LORAZEPAM
     Indication: PRODUCT USED FOR UNKNOWN INDICATION
     Dosage: ?          QUANTITY:2 INJECTION(S);OTHER ROUTE:INVOLUNTARY INJECTION 2XNO ALCOHOL WIPES?
     Dates: start: 20181012, end: 20181113

REACTIONS (6)
  - Hypersensitivity [None]
  - Dizziness [None]
  - Anxiety [None]
  - Memory impairment [None]
  - Panic attack [None]
  - Economic problem [None]

NARRATIVE: CASE EVENT DATE: 20181012
